FAERS Safety Report 15310546 (Version 9)
Quarter: 2020Q3

REPORT INFORMATION
  Report Type: Spontaneous
  Country: AT (occurrence: AT)
  Receive Date: 20180823
  Receipt Date: 20190815
  Transmission Date: 20201104
  Serious: Yes (Death, Hospitalization, Other)
  Sender: FDA-Public Use
  Company Number: PHHY2018AT035462

PATIENT
  Age: 80 Year
  Sex: Female

DRUGS (54)
  1. ATORVASTATIN [Suspect]
     Active Substance: ATORVASTATIN
     Indication: HYPERCHOLESTEROLAEMIA
     Dosage: 40 MG, QD (0?0?1)
     Route: 065
  2. ACETYLCYSTEINE. [Suspect]
     Active Substance: ACETYLCYSTEINE
     Indication: CHRONIC OBSTRUCTIVE PULMONARY DISEASE
     Dosage: 600 MG, QD  ONCE IN THE MORNING;  ONCE IN THE MORNING FOR 7 DAYS
     Route: 065
  3. PREDNISONE. [Suspect]
     Active Substance: PREDNISONE
     Indication: CHRONIC OBSTRUCTIVE PULMONARY DISEASE
     Dosage: 5 MG, QD ONCE IN THE MORNING
     Route: 065
  4. PREDNISONE. [Suspect]
     Active Substance: PREDNISONE
     Dosage: 25 MG, QD ONCE IN THE MORNING
     Route: 065
  5. IPRATROPIUM [Concomitant]
     Active Substance: IPRATROPIUM
     Indication: CHRONIC OBSTRUCTIVE PULMONARY DISEASE
     Dosage: (PUFFS AS NEEDED IN CASE OF DYSPNOEA; MAXIMUM 4X2   )
     Route: 055
  6. DICLOFENAC [Suspect]
     Active Substance: DICLOFENAC
     Indication: PAIN
     Dosage: 75 MG, BID
     Route: 065
  7. FUROSEMIDE. [Suspect]
     Active Substance: FUROSEMIDE
     Indication: PRODUCT USED FOR UNKNOWN INDICATION
     Dosage: 40 MG, UNK
     Route: 065
  8. ACETAZOLAMIDE. [Interacting]
     Active Substance: ACETAZOLAMIDE
     Indication: ALKALOSIS
     Dosage: 50 MG, QD (ONCE IN THE MORNING)
     Route: 065
  9. SPIRIVA [Suspect]
     Active Substance: TIOTROPIUM BROMIDE MONOHYDRATE
     Indication: CHRONIC OBSTRUCTIVE PULMONARY DISEASE
     Dosage: 18 UG, QD (1?0?0)
     Route: 055
     Dates: start: 20151123
  10. METHYLPREDNISOLONE. [Interacting]
     Active Substance: METHYLPREDNISOLONE
     Indication: PRODUCT USED FOR UNKNOWN INDICATION
     Dosage: 64 MG, QD
     Route: 042
  11. DULOXETINE. [Interacting]
     Active Substance: DULOXETINE
     Indication: PAIN
     Dosage: 60 MG, QD (1?0?0)
     Route: 065
  12. OMEPRAZOLE. [Suspect]
     Active Substance: OMEPRAZOLE
     Indication: GASTRITIS
     Dosage: 40 MG, QD
     Route: 065
  13. OXYGEN. [Suspect]
     Active Substance: OXYGEN
     Indication: HYPOXIA
     Dosage: 2 L, UNK
     Route: 065
  14. LISALGIL [Interacting]
     Active Substance: METAMIZOLE SODIUM
     Indication: PRODUCT USED FOR UNKNOWN INDICATION
     Dosage: 25 MG, BID
     Route: 042
  15. FLUTICASONE. [Suspect]
     Active Substance: FLUTICASONE
     Indication: CHRONIC OBSTRUCTIVE PULMONARY DISEASE
     Dosage: 460 UG, BID, PUFFS (2?0?2)
     Route: 055
     Dates: start: 20151123
  16. BISOPROLOL [Suspect]
     Active Substance: BISOPROLOL
     Dosage: 3 MG, QD
     Route: 065
  17. LEVOTHYROXINE SODIUM. [Suspect]
     Active Substance: LEVOTHYROXINE SODIUM
     Indication: HYPOTHYROIDISM
     Dosage: 75 UG, QD
     Route: 048
  18. BENSERAZIDE [Suspect]
     Active Substance: BENSERAZIDE
     Indication: RESTLESS LEGS SYNDROME
     Dosage: 25 MG, QD (ONCE AT NIGHT)
     Route: 016
  19. ALPRAZOLAM. [Interacting]
     Active Substance: ALPRAZOLAM
     Indication: FEAR
  20. SALMETEROL [Suspect]
     Active Substance: SALMETEROL
     Indication: CHRONIC OBSTRUCTIVE PULMONARY DISEASE
     Dosage: 47 UG, BID PUFFS  (2 DOSAGE FORMS,2?0?2)
     Route: 055
  21. FENOTEROL [Suspect]
     Active Substance: FENOTEROL
     Indication: CHRONIC OBSTRUCTIVE PULMONARY DISEASE
     Dosage: 0.05 MG/0.02 MG, Q12H PUFFS AS NEEDED IN CASE OF DYSPNOEA; MAXIMUM 4X2
     Route: 055
  22. THEOPHYLLIN [Suspect]
     Active Substance: THEOPHYLLINE ANHYDROUS
     Dosage: 0.5 MG, QD
     Route: 065
  23. TRAMADOL. [Interacting]
     Active Substance: TRAMADOL
     Indication: PAIN
     Dosage: 200 MG, QD
     Route: 065
  24. GABAPENTIN. [Interacting]
     Active Substance: GABAPENTIN
     Dosage: 0.5 MG, QD
     Route: 065
  25. CLOPIDOGREL [Suspect]
     Active Substance: CLOPIDOGREL BISULFATE
     Indication: CORONARY ARTERY DISEASE
     Dosage: 75 MG, QD
     Route: 065
  26. LEVOTHYROXINE SODIUM. [Suspect]
     Active Substance: LEVOTHYROXINE SODIUM
     Dosage: 125 MG,HALF DOSE ONCE IN THE MORNING
     Route: 048
  27. ACETAZOLAMIDE. [Interacting]
     Active Substance: ACETAZOLAMIDE
     Indication: HYPERCAPNIA
     Dosage: 250 MG, QW
     Route: 065
     Dates: start: 20151123
  28. VITAMIN D [Suspect]
     Active Substance: VITAMIN D NOS
     Indication: VITAMIN D DEFICIENCY
     Dosage: 16000 IE, QW
     Route: 065
  29. DIOSMIN [Suspect]
     Active Substance: DIOSMIN
     Indication: PERIPHERAL VENOUS DISEASE
     Dosage: (450 MG/50 MG),QID (1?0?0)
     Route: 065
  30. PRAMIPEXOLE. [Interacting]
     Active Substance: PRAMIPEXOLE
     Indication: RESTLESS LEGS SYNDROME
     Dosage: 2.1 MG, QD (1?0?0)
     Route: 065
  31. GABAPENTIN. [Interacting]
     Active Substance: GABAPENTIN
     Indication: PAIN
     Dosage: 600 MG, BID (1?0?1)
     Route: 065
  32. GABAPENTIN. [Interacting]
     Active Substance: GABAPENTIN
     Dosage: 1200 MG, QD
     Route: 065
  33. BISOPROLOL [Suspect]
     Active Substance: BISOPROLOL
     Indication: CORONARY ARTERY DISEASE
     Dosage: 2.5 MG, UNK (IN TWO DIVIDED DOSES, ONE AT MORNING AND ONE AT NIGHT )
     Route: 065
  34. ACETYLSALICYLIC ACID [Interacting]
     Active Substance: ASPIRIN
     Indication: CORONARY ARTERY DISEASE
     Dosage: 100 MG, QD (ONCE IN THE MORNING)
     Route: 065
  35. SERTRALINE [Suspect]
     Active Substance: SERTRALINE HYDROCHLORIDE
     Indication: PANIC ATTACK
     Dosage: 50 MG, QD (ONCE IN THE MORNING)
     Route: 065
  36. SERTRALINE [Suspect]
     Active Substance: SERTRALINE HYDROCHLORIDE
     Indication: DEPRESSION
  37. HYDROMORPHONE [Suspect]
     Active Substance: HYDROMORPHONE
     Indication: PAIN
     Dosage: 4 MG, QD (ONCE IN THE MORNING )
     Route: 065
  38. OMEPRAZOLE. [Suspect]
     Active Substance: OMEPRAZOLE
     Indication: CHRONIC OBSTRUCTIVE PULMONARY DISEASE
     Dosage: 0.5 MG, QD
     Route: 065
  39. LEVODOPA [Interacting]
     Active Substance: LEVODOPA
     Indication: RESTLESS LEGS SYNDROME
     Dosage: 100 MG, QD   ONCE AT NIGHT
     Route: 016
  40. THEOPHYLLIN [Suspect]
     Active Substance: THEOPHYLLINE ANHYDROUS
     Indication: CHRONIC OBSTRUCTIVE PULMONARY DISEASE
     Dosage: 200 MG, QD (0?0?1)
     Route: 065
  41. IBANDRONIC ACID. [Suspect]
     Active Substance: IBANDRONIC ACID
     Indication: OSTEOPOROSIS
  42. ALGELDRATE [Concomitant]
     Active Substance: ALGELDRATE
     Indication: GASTROOESOPHAGEAL REFLUX DISEASE
     Dosage: 340 MG, QOD
     Route: 065
  43. MORPHINE HYDROCHLORIDE [Concomitant]
     Active Substance: MORPHINE HYDROCHLORIDE
     Indication: PAIN
     Dosage: 4 MG, QD ONCE IN THE MORNING
     Route: 065
  44. DULOXETINE. [Interacting]
     Active Substance: DULOXETINE
     Indication: DEPRESSION
     Dosage: 60 MG, QD
     Route: 065
  45. OXYGEN. [Suspect]
     Active Substance: OXYGEN
     Indication: PERIPHERAL VENOUS DISEASE
     Dosage: 2 L/MIN (CONTINUOUSLY )
     Route: 065
  46. IBANDRONIC ACID. [Suspect]
     Active Substance: IBANDRONIC ACID
     Indication: PERIPHERAL VENOUS DISEASE
     Dosage: 3 MG, EVERY 3 MONTHS
     Route: 065
  47. DIPHENHYDRAMINE. [Concomitant]
     Active Substance: DIPHENHYDRAMINE
     Indication: PRODUCT USED FOR UNKNOWN INDICATION
     Dosage: UNK
     Route: 005
  48. HESPERIDIN [Concomitant]
     Active Substance: HESPERIDIN
     Indication: PERIPHERAL VENOUS DISEASE
     Dosage: 50 MG, QD ONCE IN THE MORNING
     Route: 065
  49. PRAMIPEXOLE. [Interacting]
     Active Substance: PRAMIPEXOLE
     Dosage: 2 MG, QD
     Route: 065
  50. RISPERIDONE. [Interacting]
     Active Substance: RISPERIDONE
     Indication: PSYCHOTIC DISORDER
     Dosage: 1 MG, UNK (HALF DOSE AT NIGHT)
     Route: 065
  51. ALPRAZOLAM. [Interacting]
     Active Substance: ALPRAZOLAM
     Indication: DYSPNOEA
     Dosage: 0.5 MG, UNK (IN TWO DIVIDED DOSES, ONE AT MORNING AND ONE AT NIGHT)
     Route: 016
  52. LEVODOPA [Interacting]
     Active Substance: LEVODOPA
     Dosage: 200 MG, Q12H
     Route: 016
  53. SALMETEROL [Suspect]
     Active Substance: SALMETEROL
     Dosage: 94 UG, QD
     Route: 055
  54. PIPERACILLIN/TAZOBACTAM [Concomitant]
     Active Substance: PIPERACILLIN SODIUM\TAZOBACTAM SODIUM
     Indication: PRODUCT USED FOR UNKNOWN INDICATION
     Route: 065

REACTIONS (16)
  - Chronic obstructive pulmonary disease [Fatal]
  - Somnolence [Fatal]
  - Delirium [Fatal]
  - Urinary tract infection [Fatal]
  - Back pain [Fatal]
  - Hypercapnia [Fatal]
  - Prescribed underdose [Unknown]
  - Off label use [Fatal]
  - Drug interaction [Fatal]
  - Arthralgia [Fatal]
  - Clostridium difficile colitis [Fatal]
  - Lung disorder [Fatal]
  - Erysipelas [Fatal]
  - Pain [Fatal]
  - Acute respiratory failure [Fatal]
  - Acute myocardial infarction [Fatal]

NARRATIVE: CASE EVENT DATE: 201510
